FAERS Safety Report 15208670 (Version 1)
Quarter: 2018Q3

REPORT INFORMATION
  Report Type: Report from Study
  Country: BR (occurrence: BR)
  Receive Date: 20180727
  Receipt Date: 20180727
  Transmission Date: 20181010
  Serious: Yes (Other)
  Sender: FDA-Public Use
  Company Number: BR-SA-2018SA175071

PATIENT
  Sex: Female
  Weight: 68 kg

DRUGS (1)
  1. INSULIN GLARGINE [Suspect]
     Active Substance: INSULIN GLARGINE
     Indication: TYPE 2 DIABETES MELLITUS
     Dosage: 42 IU, QD
     Route: 058
     Dates: start: 19980626

REACTIONS (4)
  - Hyperglycaemia [Unknown]
  - Social avoidant behaviour [Unknown]
  - Amnesia [Unknown]
  - Ischaemia [Unknown]

NARRATIVE: CASE EVENT DATE: 2015
